FAERS Safety Report 5396025-2 (Version None)
Quarter: 2007Q3

REPORT INFORMATION
  Report Type: 
  Country: None (occurrence: None)
  Receive Date: 20070724
  Receipt Date: 20070712
  Transmission Date: 20080115
  Serious: Yes (Other)
  Sender: FDA-Public Use
  Company Number: US-PFIZER INC-2007058791

PATIENT
  Sex: Female
  Weight: 36.3 kg

DRUGS (1)
  1. LYRICA [Suspect]

REACTIONS (3)
  - DEPRESSED LEVEL OF CONSCIOUSNESS [None]
  - HERPES ZOSTER [None]
  - RESPIRATORY RATE DECREASED [None]
